FAERS Safety Report 24778133 (Version 1)
Quarter: 2024Q4

REPORT INFORMATION
  Report Type: Spontaneous
  Country: US (occurrence: US)
  Receive Date: 20241226
  Receipt Date: 20241226
  Transmission Date: 20250114
  Serious: No
  Sender: PFIZER
  Company Number: US-PFIZER INC-202400312390

PATIENT
  Age: 62 Year
  Sex: Female

DRUGS (2)
  1. TUKYSA [Suspect]
     Active Substance: TUCATINIB
     Dosage: TAKE 2 150 MG TABLETS 2 TIMES A DAY
     Route: 048
  2. XELODA [Suspect]
     Active Substance: CAPECITABINE
     Dosage: UNK

REACTIONS (3)
  - Neoplasm progression [Unknown]
  - Off label use [Unknown]
  - Product use issue [Unknown]
